FAERS Safety Report 16821531 (Version 2)
Quarter: 2019Q3

REPORT INFORMATION
  Report Type: Spontaneous
  Country: US (occurrence: US)
  Receive Date: 20190918
  Receipt Date: 20190926
  Transmission Date: 20191005
  Serious: Yes (Other)
  Sender: FDA-Public Use
  Company Number: US-PFIZER INC-2019295856

PATIENT
  Age: 83 Year
  Sex: Female
  Weight: 86.18 kg

DRUGS (3)
  1. LYRICA [Suspect]
     Active Substance: PREGABALIN
     Indication: SLEEP DISORDER THERAPY
     Dosage: 100 MG, 1X/DAY, (SIG: 2 CAP ONCE A DAY AT BEDTIME)
  2. LYRICA [Suspect]
     Active Substance: PREGABALIN
     Dosage: 100 MG, 1X/DAY [50MG 2 CAPSULES ONCE A DAY ]
     Route: 048
  3. LYRICA [Suspect]
     Active Substance: PREGABALIN
     Indication: FIBROMYALGIA
     Dosage: 50 MG, 1X/DAY
     Route: 048

REACTIONS (7)
  - Disturbance in attention [Unknown]
  - Fatigue [Unknown]
  - Product storage error [Unknown]
  - Pruritus [Unknown]
  - Restless legs syndrome [Unknown]
  - Mental impairment [Unknown]
  - Arthritis [Unknown]
